FAERS Safety Report 11148382 (Version 3)
Quarter: 2015Q3

REPORT INFORMATION
  Report Type: Report from Study
  Country: NL (occurrence: NL)
  Receive Date: 20150529
  Receipt Date: 20150813
  Transmission Date: 20151125
  Serious: Yes (Hospitalization)
  Sender: FDA-Public Use
  Company Number: NL-AMGEN-NLDSL2015051450

PATIENT
  Age: 59 Year
  Sex: Female

DRUGS (19)
  1. FULVESTRANT [Concomitant]
     Active Substance: FULVESTRANT
     Dosage: 50 MG/ML, UNK
     Dates: start: 20140317, end: 20150520
  2. TELEBRIX                           /00871501/ [Concomitant]
     Dosage: 300 ML, UNK
     Dates: start: 20150522
  3. MORFINE [Concomitant]
     Active Substance: MORPHINE
     Dosage: 10 MG/ML, UNK
     Dates: start: 20150519
  4. GRANISETRON [Concomitant]
     Active Substance: GRANISETRON
     Dosage: 2 MG, UNK
     Dates: start: 20150520
  5. XGEVA [Suspect]
     Active Substance: DENOSUMAB
     Indication: PRODUCT USED FOR UNKNOWN INDICATION
     Dosage: 120 MG, Q4WK
     Route: 058
     Dates: start: 20121112
  6. ENALAPRIL [Concomitant]
     Active Substance: ENALAPRIL
     Dosage: 10 MG, UNK
     Dates: start: 20150520
  7. TEMAZEPAM. [Concomitant]
     Active Substance: TEMAZEPAM
     Dosage: 10 MG, UNK
     Dates: start: 20150521
  8. DALTEPARIN [Concomitant]
     Active Substance: DALTEPARIN
     Dosage: 12.500IE/ML
     Dates: start: 20150517
  9. CALCIUM CARBONATE W/COLECALCIFEROL [Concomitant]
     Active Substance: CALCIUM CARBONATE\CHOLECALCIFEROL
     Dosage: 1.25G/440IE
     Dates: start: 20121022
  10. NATRIUM PHOSPHATE [Concomitant]
     Dosage: UNK
     Dates: start: 20150520
  11. DEXAMETHASON                       /00016001/ [Concomitant]
     Active Substance: DEXAMETHASONE
     Dosage: 4 MG, UNK
     Dates: start: 20150522
  12. METOCLOPRAMIDE. [Concomitant]
     Active Substance: METOCLOPRAMIDE
     Dosage: 10 MG, UNK
     Dates: start: 20150522
  13. ESOMEPRAZOL                        /01479301/ [Concomitant]
     Active Substance: ESOMEPRAZOLE
     Dosage: 20 MG, UNK
     Dates: start: 20150521
  14. MAGNESIUM HYDROXIDE. [Concomitant]
     Active Substance: MAGNESIUM HYDROXIDE
     Dosage: 724 MG, UNK
     Dates: start: 20150517
  15. METFORMINE [Concomitant]
     Active Substance: METFORMIN HYDROCHLORIDE
     Dosage: 500 MG, UNK
     Dates: start: 20140508
  16. OXYCODON [Concomitant]
     Active Substance: OXYCODONE
     Dosage: 5 MG, UNK
     Dates: start: 20150513
  17. PARACETAMOL [Concomitant]
     Active Substance: ACETAMINOPHEN
     Dosage: 500 MG, UNK
     Dates: start: 20150520
  18. ACETYLSALICYLIC ACID [Concomitant]
     Active Substance: ASPIRIN
     Dosage: 80 MG, UNK
     Dates: start: 20150520
  19. PRAVASTATIN [Concomitant]
     Active Substance: PRAVASTATIN\PRAVASTATIN SODIUM
     Dosage: 10 MG, UNK
     Dates: start: 20150521

REACTIONS (4)
  - Intentional product misuse [Unknown]
  - Abdominal pain upper [Unknown]
  - Malaise [Unknown]
  - Disease progression [Unknown]

NARRATIVE: CASE EVENT DATE: 20130327
